FAERS Safety Report 8576121-9 (Version None)
Quarter: 2012Q3

REPORT INFORMATION
  Report Type: 
  Country: None (occurrence: None)
  Receive Date: 20120724
  Receipt Date: 20120716
  Transmission Date: 20120928
  Serious: Yes (Hospitalization)
  Sender: FDA-Public Use
  Company Number: DKLU1083259

PATIENT
  Age: 58 Year
  Sex: Male

DRUGS (6)
  1. VENLAFAXINE HCL [Concomitant]
  2. ZYPREXA [Suspect]
     Indication: PRODUCT USED FOR UNKNOWN INDICATION
     Dosage: 7.5 MG MILLIGRAM(S), 2 IN 1 D, ORAL
     Route: 048
     Dates: start: 20120223, end: 20120302
  3. THERALENE (ALIMEMAZINE TARTRATE) (20 MG, ORAL GEL) [Suspect]
     Indication: PRODUCT USED FOR UNKNOWN INDICATION
     Dosage: 20 MG MILLIGRAM(S), 1 IN 1 D, ORAL
     Route: 048
     Dates: start: 20120223, end: 20120302
  4. TERCIAN (CYAMEMAZINE) [Concomitant]
  5. ONFI [Suspect]
     Indication: PRODUCT USED FOR UNKNOWN INDICATION
     Dosage: 10 MG MILLIGRAM(S), 3 IN 1 D, ORAL
     Route: 048
     Dates: start: 20120217, end: 20120307
  6. ARIXTRA [Concomitant]

REACTIONS (1)
  - CHOLESTATIC LIVER INJURY [None]
